FAERS Safety Report 13777285 (Version 2)
Quarter: 2017Q3

REPORT INFORMATION
  Report Type: Spontaneous
  Country: US (occurrence: US)
  Receive Date: 20170721
  Receipt Date: 20170721
  Transmission Date: 20171127
  Serious: No
  Sender: FDA-Public Use
  Company Number: US-LANNETT COMPANY, INC.-US-2017LAN000931

PATIENT

DRUGS (10)
  1. NEOSYNEPHRINE [Concomitant]
     Active Substance: PHENYLEPHRINE HYDROCHLORIDE
     Indication: NASAL DECONGESTION THERAPY
     Dosage: UNK
     Route: 045
     Dates: start: 20170215, end: 20170215
  2. COCAINE [Suspect]
     Active Substance: COCAINE
     Indication: NASAL CAVITY PACKING
     Dosage: 2 CC 80 MG
     Route: 045
     Dates: start: 20170215, end: 20170215
  3. HYDROCHLOROTHIAZIDE. [Concomitant]
     Active Substance: HYDROCHLOROTHIAZIDE
     Indication: PRODUCT USED FOR UNKNOWN INDICATION
     Dosage: UNK, DAILY
  4. VITAMIN D                          /00107901/ [Concomitant]
     Active Substance: ERGOCALCIFEROL
     Indication: PRODUCT USED FOR UNKNOWN INDICATION
     Dosage: UNK
  5. DIAZEPAM. [Concomitant]
     Active Substance: DIAZEPAM
     Indication: PREMEDICATION
     Dosage: 10 MG, SINGLE
     Dates: start: 20170215, end: 20170215
  6. TYLENOL [Concomitant]
     Active Substance: ACETAMINOPHEN
     Indication: PREMEDICATION
     Dosage: 325 MG, SINGLE
     Dates: start: 20170215, end: 20170215
  7. LIDOCAINE. [Concomitant]
     Active Substance: LIDOCAINE
     Indication: NASAL DECONGESTION THERAPY
     Dosage: UNK
     Route: 045
     Dates: start: 20170215, end: 20170215
  8. ASPIRIN 81 [Concomitant]
     Active Substance: ASPIRIN
     Indication: PRODUCT USED FOR UNKNOWN INDICATION
     Dosage: 81 MG, UNK
  9. LOVASTATIN. [Concomitant]
     Active Substance: LOVASTATIN
     Indication: PRODUCT USED FOR UNKNOWN INDICATION
     Dosage: UNK, DAILY
     Route: 048
  10. HYDROCODONE [Concomitant]
     Active Substance: HYDROCODONE
     Indication: PREMEDICATION
     Dosage: 7.5 MG, SINGLE
     Dates: start: 20170215, end: 20170215

REACTIONS (1)
  - Drug ineffective [Recovering/Resolving]

NARRATIVE: CASE EVENT DATE: 20170215
